FAERS Safety Report 23738974 (Version 1)
Quarter: 2024Q2

REPORT INFORMATION
  Report Type: Report from Study
  Country: PH (occurrence: None)
  Receive Date: 20240413
  Receipt Date: 20240413
  Transmission Date: 20240715
  Serious: Yes (Life-Threatening, Hospitalization)
  Sender: FDA-Public Use
  Company Number: 2022A007552

PATIENT
  Sex: Female

DRUGS (1)
  1. TAGRISSO [Suspect]
     Active Substance: OSIMERTINIB
     Indication: Lung neoplasm malignant
     Route: 048
     Dates: start: 20210822

REACTIONS (5)
  - Parkinson^s disease [Unknown]
  - Septic shock [Unknown]
  - COVID-19 [Unknown]
  - Dysphagia [Unknown]
  - Nutritional condition abnormal [Unknown]
